FAERS Safety Report 4450629-X (Version None)
Quarter: 2004Q3

REPORT INFORMATION
  Report Type: 
  Country: None (occurrence: None)
  Receive Date: 20040913
  Receipt Date: 20040602
  Transmission Date: 20050211
  Serious: No
  Sender: FDA-Public Use
  Company Number: 2004-BP-04387BP(0)

PATIENT
  Age: 84 Year
  Sex: Female

DRUGS (2)
  1. SPIRIVA [Suspect]
     Indication: CHRONIC OBSTRUCTIVE AIRWAYS DISEASE
     Dosage: 18 MCG (18 MCG, 1 CAPSULE DAILY), IH
     Route: 055
     Dates: start: 20040523
  2. ALBUTEROL [Concomitant]

REACTIONS (2)
  - CONSTIPATION [None]
  - DRY MOUTH [None]
